FAERS Safety Report 13893944 (Version 2)
Quarter: 2017Q3

REPORT INFORMATION
  Report Type: Spontaneous
  Country: JP (occurrence: JP)
  Receive Date: 20170822
  Receipt Date: 20170906
  Transmission Date: 20171127
  Serious: Yes (Hospitalization, Disabling)
  Sender: FDA-Public Use
  Company Number: JP-CELGENEUS-JPN-20170800568

PATIENT
  Age: 68 Year
  Sex: Female
  Weight: 36 kg

DRUGS (5)
  1. TRAMADOL HYDROCHLORIDE. [Concomitant]
     Active Substance: TRAMADOL HYDROCHLORIDE
     Indication: ANALGESIC THERAPY
     Dosage: 100 MILLIGRAM
     Route: 048
     Dates: start: 20170327, end: 20170522
  2. GEMCITABINE HYDROCHLORIDE. [Concomitant]
     Active Substance: GEMCITABINE HYDROCHLORIDE
     Indication: PANCREATIC CARCINOMA
     Dosage: 1200 MILLIGRAM
     Route: 041
     Dates: start: 20170220, end: 20170515
  3. ABRAXANE [Suspect]
     Active Substance: PACLITAXEL
     Indication: PANCREATIC CARCINOMA
     Dosage: 150 MILLIGRAM
     Route: 042
     Dates: start: 20170220, end: 20170515
  4. TRIAZOLAM. [Concomitant]
     Active Substance: TRIAZOLAM
     Indication: INSOMNIA
     Dosage: .5 MILLIGRAM
     Route: 048
  5. ACETAMINOPHEN. [Concomitant]
     Active Substance: ACETAMINOPHEN
     Indication: ANALGESIC THERAPY
     Dosage: 1600 MILLIGRAM
     Route: 048
     Dates: start: 20170204, end: 20170522

REACTIONS (4)
  - Gastrointestinal perforation [Recovering/Resolving]
  - Postoperative wound infection [Recovering/Resolving]
  - Full blood count decreased [Unknown]
  - Liver disorder [Unknown]

NARRATIVE: CASE EVENT DATE: 20170524
